FAERS Safety Report 23273021 (Version 2)
Quarter: 2024Q1

REPORT INFORMATION
  Report Type: Spontaneous
  Country: JP (occurrence: JP)
  Receive Date: 20231207
  Receipt Date: 20240129
  Transmission Date: 20240410
  Serious: Yes (Hospitalization)
  Sender: FDA-Public Use
  Company Number: JP-NShinyaku-EVA202307887ZZLILLY

PATIENT
  Age: 74 Year
  Sex: Male

DRUGS (5)
  1. TADALAFIL [Suspect]
     Active Substance: TADALAFIL
     Indication: Pulmonary arterial hypertension
     Dosage: 20 MG, DAILY
     Route: 048
     Dates: start: 20230427, end: 20230730
  2. WARFARIN POTASSIUM [Concomitant]
     Active Substance: WARFARIN POTASSIUM
     Indication: Product used for unknown indication
     Dosage: UNKNOWN
     Route: 048
     Dates: end: 20230724
  3. AZILSARTAN KAMEDOXOMIL [Concomitant]
     Active Substance: AZILSARTAN KAMEDOXOMIL
     Indication: Product used for unknown indication
     Dosage: UNKNOWN
     Route: 048
  4. AZOSEMIDE [Concomitant]
     Active Substance: AZOSEMIDE
     Indication: Product used for unknown indication
     Dosage: UNKNOWN
     Route: 048
  5. TRELEGY ELLIPTA [Concomitant]
     Active Substance: FLUTICASONE FUROATE\UMECLIDINIUM BROMIDE\VILANTEROL TRIFENATATE
     Indication: Product used for unknown indication
     Dosage: UNKNOWN
     Route: 055

REACTIONS (4)
  - Drug-induced liver injury [Recovering/Resolving]
  - Hepatic cyst [Unknown]
  - Cholelithiasis [Unknown]
  - Polyp [Unknown]

NARRATIVE: CASE EVENT DATE: 20230725
